FAERS Safety Report 25344469 (Version 1)
Quarter: 2025Q2

REPORT INFORMATION
  Report Type: Report from Study
  Country: ES (occurrence: ES)
  Receive Date: 20250521
  Receipt Date: 20250521
  Transmission Date: 20250717
  Serious: Yes (Hospitalization, Other)
  Sender: ABBVIE
  Company Number: ES-ABBVIE-6282373

PATIENT
  Age: 53 Year
  Sex: Female

DRUGS (3)
  1. ADALIMUMAB [Suspect]
     Active Substance: ADALIMUMAB
     Indication: Crohn^s disease
     Route: 058
     Dates: start: 202304
  2. AZATHIOPRINE [Concomitant]
     Active Substance: AZATHIOPRINE
     Indication: Crohn^s disease
     Route: 065
     Dates: start: 202304
  3. MERCAPTOPURINE [Concomitant]
     Active Substance: MERCAPTOPURINE
     Indication: Crohn^s disease
     Dates: start: 202304

REACTIONS (19)
  - Vena cava thrombosis [Unknown]
  - Fungal infection [Unknown]
  - Pulmonary embolism [Unknown]
  - Pyrexia [Unknown]
  - Lymphadenopathy [Unknown]
  - Acid fast bacilli infection [Unknown]
  - Ascites [Unknown]
  - Diarrhoea [Unknown]
  - Tuberculosis [Unknown]
  - Splenomegaly [Unknown]
  - Hyperhidrosis [Unknown]
  - Abdominal lymphadenopathy [Unknown]
  - Chills [Unknown]
  - Condition aggravated [Unknown]
  - Cough [Unknown]
  - Lung infiltration [Unknown]
  - Granulomatous lymphadenitis [Unknown]
  - Enteritis [Unknown]
  - Abdominal pain [Unknown]
